FAERS Safety Report 12274022 (Version 1)
Quarter: 2016Q2

REPORT INFORMATION
  Report Type: Spontaneous
  Country: ES (occurrence: ES)
  Receive Date: 20160415
  Receipt Date: 20160415
  Transmission Date: 20160815
  Serious: Yes (Other)
  Sender: FDA-Public Use
  Company Number: PHHY2015ES127411

PATIENT
  Age: 57 Year
  Sex: Male

DRUGS (2)
  1. HEPARIN [Suspect]
     Active Substance: HEPARIN SODIUM
     Indication: PRODUCT USED FOR UNKNOWN INDICATION
     Route: 065
  2. ARGATROBAN. [Suspect]
     Active Substance: ARGATROBAN
     Indication: PRODUCT USED FOR UNKNOWN INDICATION
     Dosage: 0.5 UG/KG, UNK
     Route: 065

REACTIONS (4)
  - Haemorrhage [Unknown]
  - Thrombocytopenia [Unknown]
  - Hepatic function abnormal [Unknown]
  - Renal impairment [Unknown]
